FAERS Safety Report 24292287 (Version 1)
Quarter: 2024Q3

REPORT INFORMATION
  Report Type: Other
  Country: CA (occurrence: CA)
  Receive Date: 20240906
  Receipt Date: 20240906
  Transmission Date: 20241016
  Serious: Yes (Life-Threatening, Hospitalization, Other)
  Sender: MEDEXUS PHARMA
  Company Number: CA-MEDEXUS PHARMA, INC.-2024MED00366

PATIENT
  Age: 46 Year
  Sex: Female

DRUGS (9)
  1. METHOTREXATE [Suspect]
     Active Substance: METHOTREXATE
     Indication: Uveitis
  2. ACETAMINOPHEN [Concomitant]
     Active Substance: ACETAMINOPHEN
  3. CICLESONIDE [Concomitant]
     Active Substance: CICLESONIDE
  4. FERROUS SULFATE [Concomitant]
     Active Substance: FERROUS SULFATE
  5. FRAGMIN [Concomitant]
     Active Substance: DALTEPARIN SODIUM
  6. LANTUS [Concomitant]
     Active Substance: INSULIN GLARGINE
  7. LASIX [Concomitant]
     Active Substance: FUROSEMIDE
  8. LEVOTHYROXINE [Concomitant]
     Active Substance: LEVOTHYROXINE\LEVOTHYROXINE SODIUM
  9. ALBUTEROL [Concomitant]
     Active Substance: ALBUTEROL

REACTIONS (2)
  - Hypersensitivity pneumonitis [Recovered/Resolved]
  - Pulmonary hypertension [Recovered/Resolved]
